FAERS Safety Report 25254594 (Version 1)
Quarter: 2025Q2

REPORT INFORMATION
  Report Type: Spontaneous
  Country: FR (occurrence: FR)
  Receive Date: 20250430
  Receipt Date: 20250430
  Transmission Date: 20250716
  Serious: Yes (Life-Threatening, Hospitalization, Other)
  Sender: CHEPLAPHARM
  Company Number: None

PATIENT
  Age: 47 Year
  Sex: Male

DRUGS (19)
  1. QUETIAPINE [Suspect]
     Active Substance: QUETIAPINE
  2. MIDOMAFETAMINE [Suspect]
     Active Substance: MIDOMAFETAMINE
  3. METHAMPHETAMINE [Suspect]
     Active Substance: METHAMPHETAMINE
  4. AMPHETAMINE [Suspect]
     Active Substance: AMPHETAMINE
  5. COCAINE [Suspect]
     Active Substance: COCAINE
  6. DAFALGAN CODEINE [Suspect]
     Active Substance: ACETAMINOPHEN\CODEINE PHOSPHATE
  7. DIAZEPAM [Suspect]
     Active Substance: DIAZEPAM
  8. CYAMEMAZINE [Suspect]
     Active Substance: CYAMEMAZINE
  9. OPIUM [Suspect]
     Active Substance: OPIUM
  10. LOXAPINE [Suspect]
     Active Substance: LOXAPINE
  11. ALCOHOL [Suspect]
     Active Substance: ALCOHOL
  12. CANNABIS SATIVA SUBSP. INDICA TOP [Suspect]
     Active Substance: CANNABIS SATIVA SUBSP. INDICA TOP
  13. MORPHINE [Suspect]
     Active Substance: MORPHINE
  14. NORDAZEPAM [Suspect]
     Active Substance: NORDAZEPAM
  15. TEMAZEPAM [Suspect]
     Active Substance: TEMAZEPAM
  16. AMOXAPINE [Suspect]
     Active Substance: AMOXAPINE
  17. LIDOCAINE [Suspect]
     Active Substance: LIDOCAINE
  18. PINDOLOL [Suspect]
     Active Substance: PINDOLOL
  19. ATRACURIUM [Suspect]
     Active Substance: ATRACURIUM

REACTIONS (6)
  - Coma [Recovered/Resolved]
  - Miosis [Recovered/Resolved]
  - Bradypnoea [Recovered/Resolved]
  - Respiratory failure [Recovering/Resolving]
  - Drug use disorder [Unknown]
  - Toxicity to various agents [Unknown]

NARRATIVE: CASE EVENT DATE: 20250124
